FAERS Safety Report 10464988 (Version 1)
Quarter: 2014Q3

REPORT INFORMATION
  Report Type: Report from Study
  Country: BR (occurrence: BR)
  Receive Date: 20140919
  Receipt Date: 20140919
  Transmission Date: 20150326
  Serious: Yes (Other)
  Sender: FDA-Public Use
  Company Number: BR-GLAXOSMITHKLINE-A1089781A

PATIENT
  Age: 50 Year
  Sex: Female

DRUGS (1)
  1. SERETIDE [Suspect]
     Active Substance: FLUTICASONE FUROATE\SALMETEROL XINAFOATE
     Indication: ASTHMA
     Route: 065
     Dates: start: 201211

REACTIONS (2)
  - Osteomyelitis [Unknown]
  - Lower limb fracture [Recovered/Resolved]

NARRATIVE: CASE EVENT DATE: 201212
